FAERS Safety Report 7426801-3 (Version None)
Quarter: 2011Q2

REPORT INFORMATION
  Report Type: 
  Country: None (occurrence: None)
  Receive Date: 20110420
  Receipt Date: 20110408
  Transmission Date: 20111010
  Serious: Yes (Other)
  Sender: FDA-Public Use
  Company Number: JP-BRISTOL-MYERS SQUIBB COMPANY-15669344

PATIENT

DRUGS (2)
  1. PARAPLATIN [Suspect]
     Indication: OVARIAN CANCER
     Route: 041
  2. TAXOL [Suspect]
     Indication: OVARIAN CANCER
     Route: 041

REACTIONS (2)
  - VASCULAR OCCLUSION [None]
  - VASCULAR INJURY [None]
